FAERS Safety Report 9701649 (Version 1)
Quarter: 2013Q4

REPORT INFORMATION
  Report Type: Spontaneous
  Country: US (occurrence: US)
  Receive Date: 20131121
  Receipt Date: 20131121
  Transmission Date: 20140711
  Serious: Yes (Hospitalization)
  Sender: FDA-Public Use
  Company Number: US-SA-2013SA120117

PATIENT
  Age: 57 Year
  Sex: Female
  Weight: 166 kg

DRUGS (7)
  1. LASIX [Suspect]
     Indication: RENAL DISORDER
     Route: 065
  2. NEURONTIN [Suspect]
     Route: 065
  3. LIPITOR [Suspect]
     Indication: BLOOD CHOLESTEROL ABNORMAL
     Route: 065
  4. COUMADIN [Concomitant]
  5. DIAZEPAM [Concomitant]
     Indication: ANXIETY
  6. LOSARTAN [Concomitant]
     Indication: HYPERTENSION
  7. DEXILANT [Concomitant]

REACTIONS (2)
  - Intestinal obstruction [Unknown]
  - Hypokalaemia [Unknown]
